FAERS Safety Report 16007116 (Version 1)
Quarter: 2019Q1

REPORT INFORMATION
  Report Type: Spontaneous
  Country: IT (occurrence: IT)
  Receive Date: 20190226
  Receipt Date: 20190226
  Transmission Date: 20190418
  Serious: Yes (Other)
  Sender: FDA-Public Use
  Company Number: IT-MYLANLABS-2019M1016183

PATIENT
  Age: 65 Year
  Sex: Male

DRUGS (2)
  1. HEPARIN [Suspect]
     Active Substance: HEPARIN SODIUM
     Indication: PRODUCT USED FOR UNKNOWN INDICATION
     Dosage: UNK
  2. ASPIRIN                            /00002701/ [Interacting]
     Active Substance: ASPIRIN
     Indication: POLYCYTHAEMIA VERA
     Dosage: UNK

REACTIONS (4)
  - Labelled drug-drug interaction medication error [Unknown]
  - Product use in unapproved indication [Unknown]
  - Splenic haematoma [Unknown]
  - Product administration error [Unknown]
